FAERS Safety Report 17911553 (Version 1)
Quarter: 2020Q2

REPORT INFORMATION
  Report Type: Spontaneous
  Country: US (occurrence: US)
  Receive Date: 20200617
  Receipt Date: 20200617
  Transmission Date: 20200714
  Serious: No
  Sender: FDA-Public Use
  Company Number: None

PATIENT
  Age: 35 Year
  Sex: Female
  Weight: 70.31 kg

DRUGS (4)
  1. NEXPLANON [Suspect]
     Active Substance: ETONOGESTREL
     Dates: start: 20200529, end: 20200611
  2. BAYER ONE A DAY WOMEN^S COMPLETE MULTI VITAMIN [Concomitant]
  3. AZO CRANBERRY URINARY TRACT HEALTH [Concomitant]
  4. NATURE^S BOUNTY PROBIOTIC 10 [Concomitant]

REACTIONS (11)
  - Rash [None]
  - Swelling [None]
  - Breast swelling [None]
  - Drug ineffective [None]
  - Hypersensitivity [None]
  - Urticaria [None]
  - Peripheral swelling [None]
  - Erythema [None]
  - Skin implant removal [None]
  - Contraceptive implant [None]
  - Pruritus [None]

NARRATIVE: CASE EVENT DATE: 20200530
